FAERS Safety Report 11438755 (Version 1)
Quarter: 2015Q3

REPORT INFORMATION
  Report Type: Spontaneous
  Country: US (occurrence: US)
  Receive Date: 20150901
  Receipt Date: 20150901
  Transmission Date: 20151125
  Serious: No
  Sender: FDA-Public Use
  Company Number: US-ROCHE-1092597

PATIENT
  Sex: Male

DRUGS (5)
  1. COPEGUS [Suspect]
     Active Substance: RIBAVIRIN
     Indication: CHRONIC HEPATITIS C
     Route: 065
     Dates: start: 201110
  2. PEGASYS [Suspect]
     Active Substance: PEGINTERFERON ALFA-2A
     Indication: CHRONIC HEPATITIS C
     Route: 065
     Dates: start: 201110
  3. PEGASYS [Suspect]
     Active Substance: PEGINTERFERON ALFA-2A
     Route: 065
     Dates: start: 20120727
  4. COPEGUS [Suspect]
     Active Substance: RIBAVIRIN
     Route: 065
     Dates: start: 20120727
  5. TELAPREVIR [Concomitant]
     Active Substance: TELAPREVIR
     Dosage: NEXT 6 MONTHS
     Route: 065
     Dates: start: 20120727

REACTIONS (2)
  - Platelet count decreased [Unknown]
  - White blood cell count decreased [Recovered/Resolved]
